FAERS Safety Report 7228356-5 (Version None)
Quarter: 2011Q1

REPORT INFORMATION
  Report Type: 
  Country: None (occurrence: None)
  Receive Date: 20110114
  Receipt Date: 20110110
  Transmission Date: 20110831
  Serious: Yes (Other)
  Sender: FDA-Public Use
  Company Number: US-PFIZER INC-2011006382

PATIENT
  Sex: Female

DRUGS (4)
  1. ATENOLOL [Concomitant]
     Indication: HYPERTENSION
     Dosage: UNK
  2. VERAPAMIL [Concomitant]
     Dosage: UNK
  3. LYRICA [Suspect]
     Indication: MIGRAINE
     Dosage: 50 MG, 1X/DAY
     Route: 048
     Dates: start: 20070101
  4. LIBRIUM [Concomitant]
     Indication: HYPERTENSION
     Dosage: UNK

REACTIONS (9)
  - LIMB INJURY [None]
  - HYPERTENSION [None]
  - NERVE INJURY [None]
  - PARALYSIS [None]
  - LOSS OF CONSCIOUSNESS [None]
  - VERTIGO [None]
  - HEAD INJURY [None]
  - HYPERSENSITIVITY [None]
  - IMPAIRED DRIVING ABILITY [None]
